FAERS Safety Report 7343814-0 (Version None)
Quarter: 2011Q1

REPORT INFORMATION
  Report Type: 
  Country: None (occurrence: None)
  Receive Date: 20110310
  Receipt Date: 20110302
  Transmission Date: 20110831
  Serious: Yes (Other)
  Sender: FDA-Public Use
  Company Number: US-ROCHE-467370

PATIENT
  Sex: Male
  Weight: 79.4 kg

DRUGS (16)
  1. BECLOMETHASONE DIPROPIONATE [Concomitant]
  2. CLARITIN-D [Concomitant]
     Route: 048
     Dates: start: 19970524
  3. ACCUTANE [Suspect]
     Dosage: REPORTED ON THESE DATES AS GIVEN FOR CYSTIC ACNE.
     Route: 048
     Dates: start: 20010123, end: 20010623
  4. DESONIDE [Concomitant]
     Route: 061
     Dates: start: 19970527
  5. XANAX [Concomitant]
     Indication: ANXIETY
     Route: 048
     Dates: start: 19970204
  6. IMIPRAMINE HYDROCHLORIDE [Concomitant]
     Route: 048
     Dates: start: 19970524
  7. TETRACYCLINE HYDROCHLORIDE [Concomitant]
  8. NISTATIN [Concomitant]
     Dosage: REPORTED AS: TRIAMCIN WITH DOSING REGIMEN REPORTED AS: .1%/EUCERN 1:1.
     Dates: start: 19970516
  9. ACCUTANE [Suspect]
     Route: 048
     Dates: start: 19930401, end: 19930916
  10. ACCUTANE [Suspect]
     Route: 048
     Dates: start: 19980901, end: 19990301
  11. REMICADE [Concomitant]
  12. ASACOL [Concomitant]
     Route: 048
     Dates: start: 19970106
  13. ACCUTANE [Suspect]
     Route: 048
     Dates: start: 19970417, end: 19970815
  14. ACCUTANE [Suspect]
     Route: 048
     Dates: start: 20010913, end: 20020213
  15. FOLIC ACID [Concomitant]
  16. PREDNISONE [Concomitant]

REACTIONS (16)
  - COLITIS ULCERATIVE [None]
  - DEPRESSION [None]
  - PANIC ATTACK [None]
  - BACK PAIN [None]
  - ANXIETY [None]
  - ARTHRITIS [None]
  - LIP EXFOLIATION [None]
  - ANAEMIA [None]
  - HEADACHE [None]
  - AGORAPHOBIA [None]
  - INFLAMMATORY BOWEL DISEASE [None]
  - IRRITABLE BOWEL SYNDROME [None]
  - SUICIDAL IDEATION [None]
  - TENDONITIS [None]
  - COLITIS [None]
  - LIP DRY [None]
